FAERS Safety Report 8215745-5 (Version None)
Quarter: 2012Q1

REPORT INFORMATION
  Report Type: 
  Country: None (occurrence: None)
  Receive Date: 20120316
  Receipt Date: 20120308
  Transmission Date: 20120608
  Serious: Yes (Other)
  Sender: FDA-Public Use
  Company Number: US-BAYER-2011-075610

PATIENT
  Age: 16 Year
  Sex: Female
  Weight: 136.5 kg

DRUGS (10)
  1. SYMBICORT [Concomitant]
     Indication: ASTHMA
     Dosage: PUFF X 2 DAILY
  2. HYDROXYZINE [Concomitant]
     Indication: MULTIPLE ALLERGIES
     Dosage: 25 MG, PRN
  3. CYCLOBENZAPRINE HCL [Concomitant]
     Indication: MUSCLE RELAXANT THERAPY
     Dosage: 10 MG, UNK
  4. NEXIUM [Concomitant]
     Indication: GASTROOESOPHAGEAL REFLUX DISEASE
     Dosage: 40 MG, DAILY
  5. PROAIR HFA [Concomitant]
     Indication: MULTIPLE ALLERGIES
  6. METFORMIN HYDROCHLORIDE [Concomitant]
     Indication: DIABETES MELLITUS
     Dosage: 500 MG, DAILY
  7. XOLAIR [Concomitant]
     Indication: MULTIPLE ALLERGIES
     Dosage: 375 2 X / MONTH
  8. YASMIN [Suspect]
     Indication: ACNE
     Dosage: UNK
     Dates: start: 20080703, end: 20081007
  9. DROSPIRENONE AND ETHINYL ESTRADIOL [Suspect]
     Indication: ACNE
     Dosage: UNK
     Dates: start: 20080703, end: 20081007
  10. DICLOFENEC [Concomitant]
     Indication: FIBROMYALGIA
     Dosage: 75 MG, PRN

REACTIONS (3)
  - BILIARY DYSKINESIA [None]
  - DEEP VEIN THROMBOSIS [None]
  - GALLBLADDER INJURY [None]
